FAERS Safety Report 11516568 (Version 1)
Quarter: 2015Q3

REPORT INFORMATION
  Report Type: Spontaneous
  Country: PL (occurrence: PL)
  Receive Date: 20150917
  Receipt Date: 20150917
  Transmission Date: 20151125
  Serious: Yes (Other)
  Sender: FDA-Public Use
  Company Number: PL-ACTAVIS-2015-19587

PATIENT
  Age: 25 Year
  Sex: Male

DRUGS (19)
  1. DACARBAZINE. [Suspect]
     Active Substance: DACARBAZINE
     Indication: EPENDYMOMA MALIGNANT
     Dosage: UNK
     Route: 065
     Dates: start: 201103, end: 201108
  2. PROCARBAZINE [Suspect]
     Active Substance: PROCARBAZINE
     Indication: EPENDYMOMA MALIGNANT
     Dosage: UNK
     Route: 065
     Dates: start: 201103, end: 201108
  3. PROCARBAZINE [Suspect]
     Active Substance: PROCARBAZINE
     Dosage: UNK UNK, CYCLICAL, 3 CYCLES
     Route: 065
     Dates: start: 200910, end: 200911
  4. ETOPOSIDE (UNKNOWN) [Suspect]
     Active Substance: ETOPOSIDE
     Indication: EPENDYMOMA MALIGNANT
     Dosage: UNK UNK, CYCLICAL, 5 CYCLES
     Route: 065
  5. CYTARABINE (UNKNOWN) [Suspect]
     Active Substance: CYTARABINE
     Indication: EPENDYMOMA MALIGNANT
     Dosage: UNK
     Route: 065
     Dates: start: 200103, end: 201108
  6. METHYLPREDNISOLONE (UNKNOWN) [Suspect]
     Active Substance: METHYLPREDNISOLONE
     Indication: EPENDYMOMA MALIGNANT
     Dosage: UNK
     Route: 065
     Dates: start: 201103, end: 201108
  7. VINCRISTINE (UNKNOWN) [Suspect]
     Active Substance: VINCRISTINE
     Dosage: UNK UNK, CYCLICAL, 3 CYCLES
     Route: 065
     Dates: start: 200910, end: 200911
  8. LOMUSTINE. [Suspect]
     Active Substance: LOMUSTINE
     Dosage: UNK UNK, CYCLICAL, 3 CYCLES
     Route: 065
     Dates: start: 200910, end: 200911
  9. HYDROXYUREA. [Suspect]
     Active Substance: HYDROXYUREA
     Dosage: UNK UNK, CYCLICAL, 3 CYCLES
     Route: 065
     Dates: start: 200910, end: 200911
  10. VINCRISTINE (UNKNOWN) [Suspect]
     Active Substance: VINCRISTINE
     Indication: EPENDYMOMA MALIGNANT
     Dosage: UNK
     Route: 065
     Dates: start: 201103, end: 201108
  11. HYDROXYUREA. [Suspect]
     Active Substance: HYDROXYUREA
     Indication: EPENDYMOMA MALIGNANT
     Dosage: UNK
     Route: 065
     Dates: start: 201103, end: 201108
  12. METHYLPREDNISOLONE (UNKNOWN) [Suspect]
     Active Substance: METHYLPREDNISOLONE
     Dosage: UNK UNK, CYCLICAL, 3 CYCLES
     Route: 065
     Dates: start: 200910, end: 200911
  13. CARBOPLATIN (UNKNOWN) [Suspect]
     Active Substance: CARBOPLATIN
     Indication: EPENDYMOMA MALIGNANT
     Dosage: UNK UNK, CYCLICAL, 5 CYCLES
     Route: 065
  14. LOMUSTINE. [Suspect]
     Active Substance: LOMUSTINE
     Indication: EPENDYMOMA MALIGNANT
     Dosage: UNK
     Route: 065
     Dates: start: 201103, end: 201108
  15. CYTARABINE (UNKNOWN) [Suspect]
     Active Substance: CYTARABINE
     Dosage: UNK UNK, CYCLICAL, 3 CYCLES
     Route: 065
     Dates: start: 200910, end: 200911
  16. CISPLATIN (UNKNOWN) [Suspect]
     Active Substance: CISPLATIN
     Dosage: UNK UNK, CYCLICAL, 3 CYCLES
     Route: 065
     Dates: start: 200910, end: 200911
  17. DACARBAZINE. [Suspect]
     Active Substance: DACARBAZINE
     Dosage: UNK UNK, CYCLICAL, 3 CYCLES
     Route: 065
     Dates: start: 200910, end: 200911
  18. IFOSFAMIDE. [Suspect]
     Active Substance: IFOSFAMIDE
     Indication: EPENDYMOMA MALIGNANT
     Dosage: UNK UNK, CYCLICAL, 5 CYCLES
     Route: 065
  19. CISPLATIN (UNKNOWN) [Suspect]
     Active Substance: CISPLATIN
     Indication: EPENDYMOMA MALIGNANT
     Dosage: UNK
     Route: 065
     Dates: start: 201103, end: 201108

REACTIONS (3)
  - Thrombocytopenia [Unknown]
  - Anaemia [Unknown]
  - Pancytopenia [Unknown]
